FAERS Safety Report 6232973-9 (Version None)
Quarter: 2009Q2

REPORT INFORMATION
  Report Type: 
  Country: None (occurrence: None)
  Receive Date: 20090617
  Receipt Date: 20090602
  Transmission Date: 20091009
  Serious: Yes (Hospitalization)
  Sender: FDA-Public Use
  Company Number: US-ASTRAZENECA-2009SE02555

PATIENT
  Age: 23284 Day
  Sex: Male
  Weight: 88.7 kg

DRUGS (2)
  1. MARCAINE [Suspect]
     Route: 058
  2. PREGABALIN CODE NOT BROKEN [Suspect]
     Indication: PROCEDURAL PAIN
     Dates: start: 20090218

REACTIONS (1)
  - MUSCULAR WEAKNESS [None]
